FAERS Safety Report 5159143-X (Version None)
Quarter: 2006Q4

REPORT INFORMATION
  Report Type: 
  Country: None (occurrence: None)
  Receive Date: 20061117
  Receipt Date: 20061107
  Transmission Date: 20070319
  Serious: Yes (Hospitalization)
  Sender: FDA-Public Use
  Company Number: A-CH2006-13456

PATIENT
  Age: 60 Year
  Sex: Male

DRUGS (4)
  1. TRACLEER [Suspect]
     Indication: PULMONARY HYPERTENSION
     Dosage: ORAL
     Route: 048
     Dates: start: 20050501, end: 20061107
  2. HEPSERA [Concomitant]
  3. MAXILASE (ALPHA-AMYLASE SWINE PANCREAS) [Concomitant]
  4. PREVISCAN (FLUINDIONE) [Concomitant]

REACTIONS (4)
  - CYTOLYTIC HEPATITIS [None]
  - DENGUE FEVER [None]
  - PAIN IN EXTREMITY [None]
  - RHABDOMYOLYSIS [None]
